FAERS Safety Report 6132275-5 (Version None)
Quarter: 2009Q1

REPORT INFORMATION
  Report Type: 
  Country: None (occurrence: None)
  Receive Date: 20090325
  Receipt Date: 20090217
  Transmission Date: 20090719
  Serious: Yes (Death, Hospitalization, Disabling)
  Sender: FDA-Public Use
  Company Number: US-NOVOPROD-274816

PATIENT
  Sex: Female
  Weight: 72.4 kg

DRUGS (16)
  1. NORDITROPIN NORDIFLEX [Suspect]
     Indication: HAEMODIALYSIS
     Dosage: 1.4 MG, QD
     Route: 058
     Dates: start: 20080425, end: 20080427
  2. GLYBURIDE [Concomitant]
     Indication: TYPE 2 DIABETES MELLITUS
     Dosage: 10 MG, QD
     Dates: start: 20080206
  3. GLYBURIDE [Concomitant]
     Dosage: UNKNOWN
  4. ENALAPRIL MALEATE [Concomitant]
     Indication: HYPERTENSION
     Dosage: 10 MG, QD
     Route: 048
     Dates: start: 20070418
  5. ACIPHEX [Concomitant]
     Indication: GASTROOESOPHAGEAL REFLUX DISEASE
     Dosage: 20 MG, QD
     Route: 048
     Dates: start: 20070418
  6. LOMOTIL                            /00034001/ [Concomitant]
     Indication: DIARRHOEA
     Dosage: 2.5 MG, QD
     Route: 048
     Dates: start: 20070425
  7. COMPAZINE                          /00013302/ [Concomitant]
     Indication: NAUSEA
     Dosage: 10 MG, QD
     Route: 048
     Dates: start: 20070509
  8. COMPAZINE                          /00013302/ [Concomitant]
     Indication: VOMITING
  9. RENAGEL                            /01459901/ [Concomitant]
     Indication: HYPERPHOSPHATAEMIA
     Dosage: 7200 MG, QD
     Route: 048
     Dates: start: 20070613
  10. NEPHROVITE [Concomitant]
     Dates: start: 20070516
  11. TYLENOL (CAPLET) [Concomitant]
     Dosage: 500 MG, QD
     Dates: start: 20070613
  12. BENADRYL [Concomitant]
     Dosage: 25 MG, QD, PRN
     Dates: start: 20070822
  13. AMBIEN [Concomitant]
     Dosage: 5 MG, QD
     Dates: start: 20071107
  14. STARLIX [Concomitant]
     Dosage: 60 MG, QD
     Dates: start: 20080425
  15. STARLIX [Concomitant]
     Dosage: 120 MG, TID
  16. NORVASC [Concomitant]
     Dosage: 10 MG, QD
     Dates: start: 20080507

REACTIONS (9)
  - BLOOD PRESSURE SYSTOLIC INCREASED [None]
  - DIABETIC KETOACIDOSIS [None]
  - HEPATIC ENZYME INCREASED [None]
  - HYPERGLYCAEMIA [None]
  - HYPONATRAEMIA [None]
  - NAUSEA [None]
  - PANCREATITIS [None]
  - URINARY TRACT INFECTION [None]
  - VOMITING [None]
